FAERS Safety Report 9036364 (Version 1)
Quarter: 2013Q1

REPORT INFORMATION
  Report Type: Spontaneous
  Country: US (occurrence: None)
  Receive Date: 20130117
  Receipt Date: 20130117
  Transmission Date: 20140127
  Serious: No
  Sender: FDA-Public Use
  Company Number: None

PATIENT
  Age: 70 Year
  Sex: Male
  Weight: 65.32 kg

DRUGS (1)
  1. SODIUM CHLORIDE HYPERTONICITY OP [Suspect]
     Dosage: SMALL AMOUNT FROM TUBE, NIGHTLY BEFORE BED, OPHTHALMIC
     Route: 047
     Dates: start: 20121220, end: 20121224

REACTIONS (2)
  - Foreign body sensation in eyes [None]
  - Product substitution issue [None]
